FAERS Safety Report 9015109 (Version 1)
Quarter: 2013Q1

REPORT INFORMATION
  Report Type: Spontaneous
  Country: US (occurrence: None)
  Receive Date: 20130109
  Receipt Date: 20130109
  Transmission Date: 20140127
  Serious: No
  Sender: FDA-Public Use
  Company Number: None

PATIENT
  Age: 78 Year
  Sex: Male

DRUGS (1)
  1. SAMSCA15MG OTSUKA [Suspect]
     Indication: HYPONATRAEMIA
     Route: 048
     Dates: start: 20121026

REACTIONS (5)
  - Diarrhoea [None]
  - Rhinorrhoea [None]
  - Dizziness [None]
  - Vision blurred [None]
  - Convulsion [None]
